FAERS Safety Report 14630271 (Version 1)
Quarter: 2018Q1

REPORT INFORMATION
  Report Type: Spontaneous
  Country: US (occurrence: US)
  Receive Date: 20180313
  Receipt Date: 20180313
  Transmission Date: 20180509
  Serious: Yes (Hospitalization)
  Sender: FDA-Public Use
  Company Number: None

PATIENT
  Age: 57 Year
  Sex: Male

DRUGS (5)
  1. XARELTO [Concomitant]
     Active Substance: RIVAROXABAN
  2. ATACAND [Concomitant]
     Active Substance: CANDESARTAN CILEXETIL
  3. TESTOPEL [Suspect]
     Active Substance: TESTOSTERONE
     Indication: TESTICULAR DISORDER
     Dosage: ?          OTHER FREQUENCY:10 PELLETS 3 MTHS;?
     Route: 058
     Dates: start: 20170525
  4. PROTONIX [Concomitant]
     Active Substance: PANTOPRAZOLE SODIUM
  5. FOLIC ACID. [Concomitant]
     Active Substance: FOLIC ACID

REACTIONS (1)
  - Surgery [None]

NARRATIVE: CASE EVENT DATE: 20180208
